FAERS Safety Report 20769516 (Version 2)
Quarter: 2022Q3

REPORT INFORMATION
  Report Type: Spontaneous
  Country: US (occurrence: US)
  Receive Date: 20220429
  Receipt Date: 20220713
  Transmission Date: 20221027
  Serious: No
  Sender: FDA-Public Use
  Company Number: US-GSKCCFUS-Case-01360208_AE-78717

PATIENT
  Sex: Female

DRUGS (2)
  1. TRELEGY ELLIPTA [Suspect]
     Active Substance: FLUTICASONE FUROATE\UMECLIDINIUM BROMIDE\VILANTEROL TRIFENATATE
     Indication: Asthma
     Dosage: 200-62.5-25 MCG
     Route: 055
     Dates: start: 20220317
  2. FLUOROURACIL [Suspect]
     Active Substance: FLUOROURACIL
     Indication: Product used for unknown indication
     Dosage: UNK
     Route: 061
     Dates: start: 20220406

REACTIONS (8)
  - Migraine [Recovered/Resolved]
  - Lymphadenopathy [Unknown]
  - Dysphonia [Unknown]
  - Confusional state [Unknown]
  - Arthralgia [Unknown]
  - Neck pain [Unknown]
  - Mobility decreased [Unknown]
  - Wrong technique in device usage process [Unknown]

NARRATIVE: CASE EVENT DATE: 20220101
